FAERS Safety Report 6273089-5 (Version None)
Quarter: 2009Q3

REPORT INFORMATION
  Report Type: 
  Country: None (occurrence: None)
  Receive Date: 20090720
  Receipt Date: 20090715
  Transmission Date: 20100115
  Serious: No
  Sender: FDA-Public Use
  Company Number: US-B.I. PHARMACEUTICALS,INC./RIDGEFIELD-2009-BP-06945BP

PATIENT
  Sex: Female

DRUGS (12)
  1. CATAPRES-TTS-1 [Suspect]
     Indication: HYPERTENSION
     Dosage: 0.3 MG
     Route: 061
     Dates: start: 20000101
  2. DIOVAN [Concomitant]
  3. ASPIRIN [Concomitant]
  4. NEXIUM [Concomitant]
  5. LASIX [Concomitant]
  6. METOPROLOL TARTRATE [Concomitant]
  7. ADALAT [Concomitant]
  8. ALLOPURINOL [Concomitant]
  9. ZOCOR [Concomitant]
  10. SENOKOT [Concomitant]
  11. TYLENOL (CAPLET) [Concomitant]
     Indication: PAIN
  12. IRON TEAS [Concomitant]

REACTIONS (2)
  - APPLICATION SITE ERYTHEMA [None]
  - APPLICATION SITE IRRITATION [None]
